FAERS Safety Report 9203292 (Version 1)
Quarter: 2013Q2

REPORT INFORMATION
  Report Type: Report from Study
  Country: ES (occurrence: ES)
  Receive Date: 20130402
  Receipt Date: 20130402
  Transmission Date: 20140414
  Serious: Yes (Hospitalization, Other)
  Sender: FDA-Public Use
  Company Number: ES-ABBOTT-13P-144-1068999-00

PATIENT
  Age: 44 Year
  Sex: 0
  Weight: 97 kg

DRUGS (2)
  1. HUMIRA [Suspect]
     Indication: COLITIS ULCERATIVE
     Dates: start: 20100309
  2. MESALAZINA [Concomitant]
     Indication: COLITIS ULCERATIVE

REACTIONS (3)
  - Periproctitis [Recovered/Resolved]
  - Proctalgia [Recovered/Resolved]
  - Anal abscess [Recovered/Resolved]
